FAERS Safety Report 13754119 (Version 1)
Quarter: 2017Q3

REPORT INFORMATION
  Report Type: Spontaneous
  Country: JP (occurrence: JP)
  Receive Date: 20170713
  Receipt Date: 20170713
  Transmission Date: 20171127
  Serious: Yes (Other)
  Sender: FDA-Public Use
  Company Number: JP-009507513-1707JPN001342

PATIENT
  Age: 74 Year
  Sex: Female

DRUGS (5)
  1. GRANISETRON [Suspect]
     Active Substance: GRANISETRON
     Indication: PROPHYLAXIS OF NAUSEA AND VOMITING
     Dosage: DAILY DOSE: ON DAY 2 (3 MG, 1 D)
     Route: 051
  2. DEXAMETHASONE. [Suspect]
     Active Substance: DEXAMETHASONE
     Indication: PROPHYLAXIS OF NAUSEA AND VOMITING
     Dosage: DAILY DOSE: ON DAYS 2 AND 3 (6.6 MG, 1 D)
     Route: 065
  3. VALSARTAN. [Concomitant]
     Active Substance: VALSARTAN
     Indication: HYPERTENSION
     Dosage: UNK
     Route: 065
  4. FLUOROURACIL. [Concomitant]
     Active Substance: FLUOROURACIL
     Indication: REGIONAL CHEMOTHERAPY
     Dosage: 150 MG/M2, QD
     Route: 065
  5. CISPLATIN. [Concomitant]
     Active Substance: CISPLATIN
     Indication: REGIONAL CHEMOTHERAPY
     Dosage: 30 MG/M2, QD
     Route: 040

REACTIONS (1)
  - Hepatitis C [Recovered/Resolved]
